FAERS Safety Report 25638436 (Version 2)
Quarter: 2025Q3

REPORT INFORMATION
  Report Type: Spontaneous
  Country: US (occurrence: US)
  Receive Date: 20250804
  Receipt Date: 20250911
  Transmission Date: 20251021
  Serious: No
  Sender: LUPIN
  Company Number: US-LUPIN PHARMACEUTICALS INC.-2025-06776

PATIENT
  Age: 74 Year
  Weight: 72.562 kg

DRUGS (2)
  1. TESTOSTERONE GEL 1.62% [Suspect]
     Active Substance: TESTOSTERONE
     Indication: Product used for unknown indication
     Dosage: QD (3 PUMPS A DAY)
     Route: 065
  2. TESTOSTERONE GEL 1.62% [Suspect]
     Active Substance: TESTOSTERONE
     Dosage: QD (3 PUMPS A DAY), OTHER BOTTLES
     Route: 065

REACTIONS (3)
  - Incorrect dose administered [Unknown]
  - Product packaging quantity issue [Unknown]
  - No adverse event [Unknown]
